FAERS Safety Report 10459282 (Version 1)
Quarter: 2014Q3

REPORT INFORMATION
  Report Type: Spontaneous
  Country: IT (occurrence: IT)
  Receive Date: 20140917
  Receipt Date: 20140917
  Transmission Date: 20150326
  Serious: No
  Sender: FDA-Public Use
  Company Number: IT-ELI_LILLY_AND_COMPANY-IT201409003973

PATIENT
  Age: 41 Year
  Sex: Male

DRUGS (1)
  1. CIALIS [Suspect]
     Active Substance: TADALAFIL
     Indication: PRODUCT USED FOR UNKNOWN INDICATION
     Dosage: 10 MG, UNKNOWN
     Route: 065
     Dates: start: 20140625, end: 20140725

REACTIONS (2)
  - Photopsia [Unknown]
  - Headache [Unknown]

NARRATIVE: CASE EVENT DATE: 20140725
